FAERS Safety Report 23578583 (Version 1)
Quarter: 2024Q1

REPORT INFORMATION
  Report Type: Spontaneous
  Country: DE (occurrence: DE)
  Receive Date: 20240229
  Receipt Date: 20240229
  Transmission Date: 20240410
  Serious: Yes (Hospitalization, Other)
  Sender: FDA-Public Use
  Company Number: DE-JNJFOC-20231238390

PATIENT
  Age: 37 Year
  Sex: Female

DRUGS (8)
  1. METFORMIN [Suspect]
     Active Substance: METFORMIN HYDROCHLORIDE
     Indication: Product used for unknown indication
     Dosage: 1000.000MG
     Route: 048
  2. QUETIAPINE [Suspect]
     Active Substance: QUETIAPINE
     Indication: Product used for unknown indication
     Dosage: 400.000MG
     Route: 048
     Dates: start: 2014, end: 2015
  3. QUETIAPINE [Suspect]
     Active Substance: QUETIAPINE
     Dosage: 600.000MG
     Route: 048
     Dates: start: 2015
  4. RAMIPRIL [Suspect]
     Active Substance: RAMIPRIL
     Indication: Product used for unknown indication
     Dosage: 2.500MG
     Route: 048
  5. RISPERDAL [Suspect]
     Active Substance: RISPERIDONE
     Dosage: 0.500MG
     Route: 048
     Dates: start: 20230824, end: 20230825
  6. RISPERDAL [Suspect]
     Active Substance: RISPERIDONE
     Dosage: 1.000MG
     Route: 048
     Dates: start: 20230818, end: 20230823
  7. RISPERDAL [Suspect]
     Active Substance: RISPERIDONE
     Dosage: 1.500MG
     Route: 048
     Dates: start: 20230816, end: 20230817
  8. RISPERDAL [Suspect]
     Active Substance: RISPERIDONE
     Indication: Product use in unapproved indication
     Dosage: 2.000MG
     Route: 048
     Dates: start: 20230301, end: 20230815

REACTIONS (3)
  - Galactorrhoea [Unknown]
  - Hyperprolactinaemia [Unknown]
  - Amenorrhoea [Unknown]

NARRATIVE: CASE EVENT DATE: 20230501
